FAERS Safety Report 5837303-X (Version None)
Quarter: 2008Q3

REPORT INFORMATION
  Report Type: 
  Country: None (occurrence: None)
  Receive Date: 20080807
  Receipt Date: 20080725
  Transmission Date: 20090109
  Serious: Yes (Hospitalization)
  Sender: FDA-Public Use
  Company Number: PL-TYCO HEALTHCARE/MALLINCKRODT-T200801226

PATIENT

DRUGS (2)
  1. IMIPRAMINE PAMOATE [Suspect]
     Indication: DEPRESSION
     Dosage: 150 MG, QD (Q24H)
  2. AMITRIPTYLINE HCL [Suspect]
     Indication: DEPRESSION
     Dosage: 50 MG, QD

REACTIONS (3)
  - VENTRICULAR FIBRILLATION [None]
  - VENTRICULAR FLUTTER [None]
  - VENTRICULAR TACHYCARDIA [None]
